FAERS Safety Report 12593077 (Version 1)
Quarter: 2016Q3

REPORT INFORMATION
  Report Type: Spontaneous
  Country: US (occurrence: US)
  Receive Date: 20160726
  Receipt Date: 20160726
  Transmission Date: 20161109
  Serious: No
  Sender: FDA-Public Use
  Company Number: US-ABBVIE-16P-163-1575909-00

PATIENT
  Age: 41 Year
  Sex: Female
  Weight: 45.4 kg

DRUGS (3)
  1. SYNTHROID [Suspect]
     Active Substance: LEVOTHYROXINE SODIUM
     Indication: THYROIDECTOMY
     Route: 048
     Dates: start: 20160209
  2. SYNTHROID [Suspect]
     Active Substance: LEVOTHYROXINE SODIUM
     Indication: THYROIDECTOMY
     Route: 048
     Dates: start: 2013, end: 20160207
  3. SYNTHROID [Suspect]
     Active Substance: LEVOTHYROXINE SODIUM
     Dosage: 1/2 TABLET DAILY
     Route: 048
     Dates: start: 20160208, end: 20160209

REACTIONS (6)
  - Drug effect variable [Unknown]
  - Insomnia [Not Recovered/Not Resolved]
  - Menstruation delayed [Recovered/Resolved]
  - Blood thyroid stimulating hormone decreased [Unknown]
  - Palpitations [Recovered/Resolved]
  - Product quality issue [Unknown]

NARRATIVE: CASE EVENT DATE: 201601
